FAERS Safety Report 19731668 (Version 1)
Quarter: 2021Q3

REPORT INFORMATION
  Report Type: Spontaneous
  Country: CN (occurrence: CN)
  Receive Date: 20210820
  Receipt Date: 20210820
  Transmission Date: 20211014
  Serious: Yes (Life-Threatening, Hospitalization)
  Sender: FDA-Public Use
  Company Number: CN-ASTRAZENECA-2021A681379

PATIENT
  Age: 59 Year
  Sex: Female
  Weight: 65.5 kg

DRUGS (1)
  1. DAPAGLIFLOZIN TABLETS [Suspect]
     Active Substance: DAPAGLIFLOZIN
     Indication: BLOOD GLUCOSE ABNORMAL
     Route: 048
     Dates: start: 20210723, end: 20210726

REACTIONS (1)
  - Diabetic ketoacidosis [Recovering/Resolving]

NARRATIVE: CASE EVENT DATE: 20210726
